FAERS Safety Report 6108518-0 (Version None)
Quarter: 2009Q1

REPORT INFORMATION
  Report Type: 
  Country: None (occurrence: None)
  Receive Date: 20090309
  Receipt Date: 20090305
  Transmission Date: 20090719
  Serious: No
  Sender: FDA-Public Use
  Company Number: US-B.I. PHARMACEUTICALS,INC./RIDGEFIELD-2009-BP-02716BP

PATIENT
  Age: 75 Year
  Sex: Female

DRUGS (10)
  1. SPIRIVA [Suspect]
     Indication: CHRONIC OBSTRUCTIVE PULMONARY DISEASE
     Dosage: 18MCG
     Route: 055
     Dates: start: 20090208
  2. SYNTHROID [Concomitant]
     Indication: THYROID DISORDER
     Dosage: 50MCG
     Route: 048
  3. COMBIVENT [Concomitant]
     Indication: CHRONIC OBSTRUCTIVE PULMONARY DISEASE
     Route: 055
     Dates: start: 20060101
  4. RESTORIL [Concomitant]
     Indication: INSOMNIA
     Route: 048
  5. ATIVAN [Concomitant]
     Indication: ANXIETY
     Dosage: 1MG
     Route: 048
  6. ATIVAN [Concomitant]
     Dosage: 1MG
     Route: 048
  7. DYAZIDE [Concomitant]
     Indication: HYPERTENSION
     Route: 048
  8. NORVASC [Concomitant]
     Indication: HYPERTENSION
     Dosage: 10MG
     Route: 048
  9. NEXIUM [Concomitant]
     Indication: GASTROINTESTINAL DISORDER
     Dosage: 40MG
     Route: 048
  10. LEXAPRO [Concomitant]
     Indication: DEPRESSION
     Dosage: 10MG
     Route: 048

REACTIONS (6)
  - CONSTIPATION [None]
  - DRY THROAT [None]
  - DYSPHONIA [None]
  - LUNG INFECTION [None]
  - OROPHARYNGEAL PAIN [None]
  - THROAT TIGHTNESS [None]
